FAERS Safety Report 12852982 (Version 1)
Quarter: 2016Q4

REPORT INFORMATION
  Report Type: Spontaneous
  Country: US (occurrence: US)
  Receive Date: 20161016
  Receipt Date: 20161016
  Transmission Date: 20170207
  Serious: Yes (Other)
  Sender: FDA-Public Use
  Company Number: None

PATIENT
  Age: 36 Year
  Sex: Female
  Weight: 78.75 kg

DRUGS (7)
  1. OMEPRAZOLE. [Concomitant]
     Active Substance: OMEPRAZOLE
  2. MONTELUKAST [Concomitant]
     Active Substance: MONTELUKAST SODIUM
  3. HYOSCYAMINE SUBLINGUAL TABS VIRTUS [Suspect]
     Active Substance: HYOSCYAMINE
     Indication: ABDOMINAL PAIN
     Dosage: AT BEDTIME
     Route: 048
     Dates: start: 20160713, end: 20160716
  4. LEVOTHYROXINE (112) [Concomitant]
  5. MICROGESTIN [Concomitant]
     Active Substance: ETHINYL ESTRADIOL\NORETHINDRONE ACETATE
  6. CENTRUM CHEWABLE VITAMIN [Concomitant]
  7. CALCIUM/MAGNESIUM [Concomitant]

REACTIONS (3)
  - Disorientation [None]
  - Depressed level of consciousness [None]
  - Amnesia [None]

NARRATIVE: CASE EVENT DATE: 20160716
